FAERS Safety Report 13012913 (Version 2)
Quarter: 2016Q4

REPORT INFORMATION
  Report Type: Report from Study
  Country: JP (occurrence: JP)
  Receive Date: 20161209
  Receipt Date: 20161227
  Transmission Date: 20170207
  Serious: Yes (Hospitalization, Other)
  Sender: FDA-Public Use
  Company Number: JP-UCBSA-2016046405

PATIENT
  Age: 33 Year
  Sex: Female
  Weight: 48 kg

DRUGS (10)
  1. E KEPPRA [Concomitant]
     Active Substance: LEVETIRACETAM
     Indication: EPILEPSY
     Dosage: 3000 MG, ONCE DAILY (QD)
     Route: 048
     Dates: start: 2012
  2. URSO [Concomitant]
     Active Substance: URSODIOL
     Indication: GAMMA-GLUTAMYLTRANSFERASE INCREASED
     Dosage: 50 MG, 2X/DAY (BID)
     Route: 048
     Dates: start: 2011
  3. LACOSAMIDE EP [Suspect]
     Active Substance: LACOSAMIDE
     Dosage: 50 MG, 2X/DAY (BID)
     Route: 048
     Dates: start: 20161130, end: 20161201
  4. TOPINA [Concomitant]
     Active Substance: TOPIRAMATE
     Indication: EPILEPSY
     Dosage: 25 MG, 2X/DAY (BID)
     Route: 048
     Dates: start: 20130714
  5. LACOSAMIDE EP [Suspect]
     Active Substance: LACOSAMIDE
     Indication: EPILEPSY
     Dosage: 150 MG, 2X/DAY (BID)
     Route: 048
     Dates: start: 20140325, end: 20140901
  6. LACOSAMIDE EP [Suspect]
     Active Substance: LACOSAMIDE
     Dosage: 100 MG, 2X/DAY (BID)
     Route: 048
     Dates: start: 20161201
  7. TOPINA [Concomitant]
     Active Substance: TOPIRAMATE
     Dosage: 200 MG, ONCE DAILY (QD)
     Route: 048
     Dates: start: 20160706
  8. LACOSAMIDE EP [Suspect]
     Active Substance: LACOSAMIDE
     Dosage: 150 MG, 2X/DAY (BID)
     Route: 048
     Dates: start: 20140922, end: 20161130
  9. TEGRETOL [Concomitant]
     Active Substance: CARBAMAZEPINE
     Indication: EPILEPSY
     Dosage: 400 MG DAILY
     Route: 048
     Dates: start: 201303
  10. LACOSAMIDE EP [Suspect]
     Active Substance: LACOSAMIDE
     Dosage: 200 MG, 2X/DAY (BID)
     Route: 048
     Dates: start: 20140902, end: 20140921

REACTIONS (1)
  - Status epilepticus [Recovered/Resolved]

NARRATIVE: CASE EVENT DATE: 20161201
